FAERS Safety Report 6331069-5 (Version None)
Quarter: 2009Q3

REPORT INFORMATION
  Report Type: 
  Country: None (occurrence: None)
  Receive Date: 20090827
  Receipt Date: 20090819
  Transmission Date: 20100115
  Serious: Yes (Other)
  Sender: FDA-Public Use
  Company Number: B0590368A

PATIENT
  Sex: Female

DRUGS (2)
  1. ADVAIR HFA [Suspect]
     Route: 055
  2. SEREVENT [Suspect]
     Route: 055

REACTIONS (2)
  - ASTHMA [None]
  - COUGH [None]
